FAERS Safety Report 8415556-1 (Version None)
Quarter: 2012Q2

REPORT INFORMATION
  Report Type: 
  Country: None (occurrence: None)
  Receive Date: 20120530
  Receipt Date: 20120515
  Transmission Date: 20120825
  Serious: Yes (Hospitalization)
  Sender: FDA-Public Use
  Company Number: 2012SGN00218

PATIENT
  Age: 67 Year
  Sex: Female
  Weight: 68.8 kg

DRUGS (13)
  1. SINGULAIR [Concomitant]
  2. ASPIRIN [Concomitant]
  3. ALBUTEROL SULFATE AUTOHALER [Concomitant]
  4. BRENTUXIMAB VEDOTIN (BRENTUXIMAB VEDOTIN) INJECTION [Suspect]
     Indication: ANAPLASTIC LARGE CELL LYMPHOMA T- AND NULL-CELL TYPES
     Dosage: 1.8 MG/KG, Q21D, INTRAVENOUS
     Route: 042
     Dates: start: 20120206, end: 20120514
  5. CYCLOPHOSPHAMIDE [Suspect]
     Indication: ANAPLASTIC LARGE CELL LYMPHOMA T- AND NULL-CELL TYPES
     Dosage: 750 MG/M2, Q21D, INTRAVENOUS
     Route: 042
     Dates: start: 20120206, end: 20120514
  6. PREDNISONE TAB [Suspect]
     Indication: ANAPLASTIC LARGE CELL LYMPHOMA T- AND NULL-CELL TYPES
     Dosage: 100 MG, Q2LD, ORAL
     Route: 048
     Dates: start: 20120206, end: 20120518
  7. MAXZIDE [Concomitant]
  8. DOXORUBICIN HCL [Suspect]
     Indication: ANAPLASTIC LARGE CELL LYMPHOMA T- AND NULL-CELL TYPES
     Dosage: 50 MG/M2, Q21D, INTRAVENOUS
     Route: 042
     Dates: start: 20120206, end: 20120514
  9. LOVASTATIN [Concomitant]
  10. CLONIDINE [Concomitant]
  11. CALAN [Concomitant]
  12. TRIAMCINOLONE (TRIAMCINOLONE ACETONIDE) [Concomitant]
  13. MULTIVITAMIN [Concomitant]

REACTIONS (10)
  - ASTHENIA [None]
  - FEBRILE NEUTROPENIA [None]
  - HYPOKALAEMIA [None]
  - WHITE BLOOD CELL COUNT DECREASED [None]
  - HAEMATOCRIT DECREASED [None]
  - WEIGHT DECREASED [None]
  - URINARY TRACT INFECTION [None]
  - HAEMOGLOBIN DECREASED [None]
  - FATIGUE [None]
  - ESCHERICHIA TEST POSITIVE [None]
